FAERS Safety Report 25444969 (Version 1)
Quarter: 2025Q2

REPORT INFORMATION
  Report Type: Spontaneous
  Country: BR (occurrence: BR)
  Receive Date: 20250617
  Receipt Date: 20250617
  Transmission Date: 20250717
  Serious: No
  Sender: EPIC PHARM
  Company Number: BR-EPICPHARMA-BR-2025EPCLIT00741

PATIENT
  Age: 42 Year
  Sex: Male

DRUGS (1)
  1. MOXIFLOXACIN HYDROCHLORIDE [Suspect]
     Active Substance: MOXIFLOXACIN HYDROCHLORIDE
     Indication: Sinusitis
     Route: 048
     Dates: start: 2019

REACTIONS (1)
  - Iris transillumination defect [Recovering/Resolving]
